FAERS Safety Report 5484882-0 (Version None)
Quarter: 2007Q4

REPORT INFORMATION
  Report Type: 
  Country: None (occurrence: None)
  Receive Date: 20071010
  Receipt Date: 20071001
  Transmission Date: 20080405
  Serious: Yes (Death, Hospitalization)
  Sender: FDA-Public Use
  Company Number: 083-20785-07080979

PATIENT
  Age: 80 Year
  Sex: Female

DRUGS (4)
  1. THALIDOMIDE [Suspect]
     Indication: DRUG USE FOR UNKNOWN INDICATION
     Dosage: 50 MG, DAILY, ORAL
     Route: 048
     Dates: start: 20070723
  2. VELCADE [Suspect]
     Indication: MULTIPLE MYELOMA
     Dosage: 2 MG
     Dates: start: 20070723
  3. MELPHALAN (MELPHALAN) [Suspect]
     Indication: MULTIPLE MYELOMA
     Dosage: 14 MG, DAILY X 4 DAYS
     Dates: start: 20070723
  4. PREDNISONE TAB [Suspect]
     Indication: MULTIPLE MYELOMA
     Dosage: 75 MG, DAILY X 4 DAYS
     Dates: start: 20070723

REACTIONS (5)
  - ANAEMIA [None]
  - COLITIS ISCHAEMIC [None]
  - CONSTIPATION [None]
  - GASTROINTESTINAL DISORDER [None]
  - INTESTINAL INFARCTION [None]
